FAERS Safety Report 6900731-5 (Version None)
Quarter: 2010Q3

REPORT INFORMATION
  Report Type: 
  Country: None (occurrence: None)
  Receive Date: 20100730
  Receipt Date: 20100719
  Transmission Date: 20110219
  Serious: Yes (Other)
  Sender: FDA-Public Use
  Company Number: BR-1182670

PATIENT
  Age: 52 Year
  Sex: Female

DRUGS (2)
  1. AZOPT [Suspect]
     Indication: GLAUCOMA
     Dosage: 1 GTT BID OU
     Route: 047
     Dates: start: 20070101
  2. XALACOM (XALACOM) [Concomitant]

REACTIONS (3)
  - ANGINA PECTORIS [None]
  - TACHYCARDIA [None]
  - VOMITING [None]
